FAERS Safety Report 4531377-4 (Version None)
Quarter: 2004Q4

REPORT INFORMATION
  Report Type: 
  Country: None (occurrence: None)
  Receive Date: 20041216
  Receipt Date: 20041129
  Transmission Date: 20050328
  Serious: Yes (Other)
  Sender: FDA-Public Use
  Company Number: USA041184727

PATIENT
  Age: 80 Year
  Sex: Female

DRUGS (6)
  1. GEMZAR [Suspect]
     Indication: OVARIAN CANCER
     Dosage: 800 MG
     Dates: start: 20041021
  2. GEMZAR [Suspect]
     Indication: RECURRENT CANCER
     Dosage: 800 MG
     Dates: start: 20041021
  3. CARBOPLATIN [Concomitant]
  4. NIACIN [Concomitant]
  5. ASPIRIN [Concomitant]
  6. LEVOXYL [Concomitant]

REACTIONS (6)
  - BLOOD THYROID STIMULATING HORMONE INCREASED [None]
  - CONTUSION [None]
  - FATIGUE [None]
  - HEPATIC ENZYME INCREASED [None]
  - NAUSEA [None]
  - TUMOUR MARKER INCREASED [None]
